FAERS Safety Report 5851256-X (Version None)
Quarter: 2008Q3

REPORT INFORMATION
  Report Type: 
  Country: None (occurrence: None)
  Receive Date: 20080820
  Receipt Date: 20080811
  Transmission Date: 20090109
  Serious: No
  Sender: FDA-Public Use
  Company Number: SE-JNJFOC-20080701186

PATIENT
  Age: 20 Year
  Sex: Female

DRUGS (1)
  1. IPREN [Suspect]
     Indication: JOINT INJURY
     Route: 048

REACTIONS (3)
  - FATIGUE [None]
  - RASH PRURITIC [None]
  - SWELLING [None]
